FAERS Safety Report 5237249-4 (Version None)
Quarter: 2007Q1

REPORT INFORMATION
  Report Type: 
  Country: None (occurrence: None)
  Receive Date: 20070213
  Receipt Date: 20070131
  Transmission Date: 20070707
  Serious: Yes (Other)
  Sender: FDA-Public Use
  Company Number: PHEH2007US01505

PATIENT
  Age: 44 Year
  Sex: Female

DRUGS (1)
  1. GLEEVEC [Suspect]
     Indication: CHRONIC MYELOID LEUKAEMIA
     Dosage: 300 MG, QD
     Route: 048
     Dates: start: 20051001

REACTIONS (5)
  - BLISTER [None]
  - CONDITION AGGRAVATED [None]
  - SPONDYLOARTHROPATHY [None]
  - URTICARIA [None]
  - UVEITIS [None]
